FAERS Safety Report 20119233 (Version 2)
Quarter: 2021Q4

REPORT INFORMATION
  Report Type: Report from Study
  Country: US (occurrence: US)
  Receive Date: 20211126
  Receipt Date: 20211221
  Transmission Date: 20220304
  Serious: Yes (Other)
  Sender: FDA-Public Use
  Company Number: US-ABBVIE-21K-163-4173795-00

PATIENT
  Sex: Male

DRUGS (2)
  1. HUMIRA [Suspect]
     Active Substance: ADALIMUMAB
     Indication: Psoriatic arthropathy
     Dosage: CF
     Route: 058
  2. HUMIRA [Suspect]
     Active Substance: ADALIMUMAB
     Route: 058

REACTIONS (5)
  - Hepatic cirrhosis [Not Recovered/Not Resolved]
  - Hepatic steatosis [Recovering/Resolving]
  - Gout [Recovering/Resolving]
  - Psoriatic arthropathy [Recovering/Resolving]
  - Hepatic enzyme decreased [Unknown]

NARRATIVE: CASE EVENT DATE: 20210101
